FAERS Safety Report 16742571 (Version 2)
Quarter: 2019Q4

REPORT INFORMATION
  Report Type: Report from Study
  Country: US (occurrence: US)
  Receive Date: 20190826
  Receipt Date: 20191004
  Transmission Date: 20200122
  Serious: No
  Sender: FDA-Public Use
  Company Number: US-009507513-1908USA008539

PATIENT
  Age: 36 Year
  Sex: Female
  Weight: 70.75 kg

DRUGS (2)
  1. IMPLANON [Suspect]
     Active Substance: ETONOGESTREL
     Dosage: 1 IMPLANT
     Route: 059
     Dates: start: 201808
  2. IMPLANON [Suspect]
     Active Substance: ETONOGESTREL
     Dosage: 1 IMPLANT IN THE ^LEFT BICEIPITALIS^
     Route: 059
     Dates: start: 20150914

REACTIONS (5)
  - Complication of device removal [Unknown]
  - Device deployment issue [Unknown]
  - Overdose [Unknown]
  - Complication associated with device [Unknown]
  - Inappropriate schedule of product administration [Unknown]

NARRATIVE: CASE EVENT DATE: 20150914
